FAERS Safety Report 6939526-5 (Version None)
Quarter: 2010Q3

REPORT INFORMATION
  Report Type: 
  Country: None (occurrence: None)
  Receive Date: 20100819
  Receipt Date: 20100803
  Transmission Date: 20110219
  Serious: Yes (Hospitalization, Other)
  Sender: FDA-Public Use
  Company Number: 016699

PATIENT
  Age: 62 Year
  Sex: Male

DRUGS (5)
  1. ISOSORBIDE MONONITRATE [Suspect]
  2. CALCIUM CHLORIDE [Suspect]
     Dosage: 10ML + 40ML OF 10% SOLUTION
  3. ADIZEM (ADIZEM--SR) [Suspect]
     Dosage: 2.5 G TOTAL
  4. ATORVASTATIN CALCIUM [Suspect]
  5. ASPIRIN [Suspect]

REACTIONS (10)
  - ACIDOSIS [None]
  - BLOOD GLUCOSE ABNORMAL [None]
  - GAIT DISTURBANCE [None]
  - HYPERKALAEMIA [None]
  - HYPOTENSION [None]
  - MULTIPLE DRUG OVERDOSE INTENTIONAL [None]
  - OXYGEN SATURATION DECREASED [None]
  - RENAL IMPAIRMENT [None]
  - VISION BLURRED [None]
  - VOMITING [None]
